FAERS Safety Report 5801512-6 (Version None)
Quarter: 2008Q2

REPORT INFORMATION
  Report Type: 
  Country: None (occurrence: None)
  Receive Date: 20080626
  Receipt Date: 20071101
  Transmission Date: 20081010
  Serious: Yes (Hospitalization)
  Sender: FDA-Public Use
  Company Number: 529226

PATIENT
  Age: 46 Year
  Sex: Female

DRUGS (1)
  1. XELODA [Suspect]
     Indication: BREAST CANCER STAGE IV
     Dosage: ORAL
     Route: 048

REACTIONS (3)
  - ENCEPHALOPATHY [None]
  - NAUSEA [None]
  - VOMITING [None]
